FAERS Safety Report 16009803 (Version 1)
Quarter: 2019Q1

REPORT INFORMATION
  Report Type: Spontaneous
  Country: US (occurrence: US)
  Receive Date: 20190227
  Receipt Date: 20190227
  Transmission Date: 20190418
  Serious: No
  Sender: FDA-Public Use
  Company Number: US-SA-2019SA052957

PATIENT
  Sex: Female

DRUGS (1)
  1. DUPIXENT [Suspect]
     Active Substance: DUPILUMAB
     Indication: ECZEMA
     Dosage: 600 MG, 1X
     Route: 058
     Dates: start: 20190219, end: 20190219

REACTIONS (8)
  - Injection site urticaria [Not Recovered/Not Resolved]
  - Chapped lips [Not Recovered/Not Resolved]
  - Wrong technique in product usage process [Unknown]
  - Injection site hypersensitivity [Not Recovered/Not Resolved]
  - Injection site erythema [Recovering/Resolving]
  - Injection site pain [Not Recovered/Not Resolved]
  - Injection site pruritus [Recovering/Resolving]
  - Lip dry [Not Recovered/Not Resolved]

NARRATIVE: CASE EVENT DATE: 20190219
